FAERS Safety Report 7703214-8 (Version None)
Quarter: 2011Q3

REPORT INFORMATION
  Report Type: 
  Country: None (occurrence: None)
  Receive Date: 20110823
  Receipt Date: 20110811
  Transmission Date: 20111222
  Serious: Yes (Death, Hospitalization)
  Sender: FDA-Public Use
  Company Number: ES-SANOFI-AVENTIS-2011SA051695

PATIENT
  Age: 82 Year
  Sex: Male

DRUGS (6)
  1. ENOXAPARIN SODIUM [Suspect]
     Indication: ATRIAL FIBRILLATION
     Dosage: FREQUENCY: EVERY 1 DAY;
     Route: 058
     Dates: start: 20110519, end: 20110528
  2. SINTROM [Interacting]
     Indication: ATRIAL FIBRILLATION
     Dosage: FORM: 245
     Route: 048
     Dates: start: 20090414, end: 20110528
  3. FUROSEMIDE [Concomitant]
     Indication: HYPERTENSION
     Dosage: DAILY DOSE: 40 MG
     Route: 048
     Dates: start: 20110512, end: 20110528
  4. LEVOFLOXACIN [Concomitant]
     Indication: PNEUMONIA
     Route: 048
     Dates: start: 20110512, end: 20110528
  5. KEPPRA [Concomitant]
     Indication: EPILEPSY
     Dosage: FORM: 09
     Route: 048
     Dates: start: 20090414, end: 20110528
  6. PANTOPRAZOLE [Concomitant]
     Indication: PROPHYLAXIS AGAINST GASTROINTESTINAL ULCER
     Route: 048
     Dates: start: 20110512, end: 20110528

REACTIONS (3)
  - HAEMORRHAGE URINARY TRACT [None]
  - DRUG INTERACTION [None]
  - HYPOVOLAEMIC SHOCK [None]
